FAERS Safety Report 7020233-8 (Version None)
Quarter: 2010Q3

REPORT INFORMATION
  Report Type: 
  Country: None (occurrence: None)
  Receive Date: 20100929
  Receipt Date: 20100927
  Transmission Date: 20110219
  Serious: Yes (Death, Disabling, Other)
  Sender: FDA-Public Use
  Company Number: PHHY2010HN63819

PATIENT
  Age: 78 Year
  Sex: Male

DRUGS (1)
  1. TRILEPTAL [Suspect]
     Indication: CONVULSION
     Dosage: HALF A TABLET OF 600 MG IN THE MORNING AND AFTERNOON, AND ONE 600 MG TABLET IN THE EVENING
     Route: 048

REACTIONS (4)
  - CEREBROVASCULAR ACCIDENT [None]
  - DEATH [None]
  - FATIGUE [None]
  - SPINAL FRACTURE [None]
